FAERS Safety Report 9878994 (Version 2)
Quarter: 2014Q1

REPORT INFORMATION
  Report Type: Spontaneous
  Country: US (occurrence: US)
  Receive Date: 20140206
  Receipt Date: 20140310
  Transmission Date: 20141002
  Serious: Yes (Other)
  Sender: FDA-Public Use
  Company Number: US-PFIZER INC-2014033740

PATIENT
  Age: 53 Year
  Sex: Male
  Weight: 72.11 kg

DRUGS (1)
  1. LYRICA [Suspect]
     Indication: DIABETIC NEUROPATHY
     Dosage: 225 MG, 2X/DAY
     Route: 048
     Dates: start: 2003, end: 20140131

REACTIONS (9)
  - Gait disturbance [Unknown]
  - Activities of daily living impaired [Unknown]
  - Pain [Unknown]
  - Depressed mood [Unknown]
  - Arterial disorder [Unknown]
  - Irritability [Unknown]
  - Pain [Unknown]
  - Limb discomfort [Unknown]
  - Pain in extremity [Unknown]
